FAERS Safety Report 13489042 (Version 1)
Quarter: 2017Q2

REPORT INFORMATION
  Report Type: Spontaneous
  Country: US (occurrence: US)
  Receive Date: 20170426
  Receipt Date: 20170426
  Transmission Date: 20170830
  Serious: No
  Sender: FDA-Public Use
  Company Number: US-MAYNE PHARMA-2015MYN000327

PATIENT
  Sex: Female

DRUGS (1)
  1. CARBIDOPA/LEVODOPA [Suspect]
     Active Substance: CARBIDOPA\LEVODOPA
     Indication: TORTICOLLIS
     Dosage: 25 MG/100 MG
     Route: 065

REACTIONS (13)
  - Dry mouth [Unknown]
  - Product substitution issue [Unknown]
  - Product use in unapproved indication [Unknown]
  - Anxiety [Unknown]
  - Nervousness [Unknown]
  - Feeling jittery [Unknown]
  - Dyskinesia [Unknown]
  - Speech disorder [Unknown]
  - Visual impairment [Unknown]
  - Muscle spasms [Unknown]
  - Muscle tightness [Unknown]
  - Neck pain [Unknown]
  - Cognitive disorder [Unknown]
